FAERS Safety Report 6935216-3 (Version None)
Quarter: 2010Q3

REPORT INFORMATION
  Report Type: 
  Country: None (occurrence: None)
  Receive Date: 20100822
  Receipt Date: 20100818
  Transmission Date: 20110219
  Serious: Yes (Death, Other)
  Sender: FDA-Public Use
  Company Number: PHHY2010JP24830

PATIENT
  Sex: Male
  Weight: 62 kg

DRUGS (4)
  1. TEGRETOL [Suspect]
     Indication: CONVULSION
     Dosage: 200 MG, QD
     Route: 048
     Dates: start: 20100108, end: 20100416
  2. GABAPENTIN [Suspect]
     Indication: CONVULSION
     Dosage: 2400 MG, UNK
     Route: 048
     Dates: start: 20100131, end: 20100416
  3. BONALON [Suspect]
     Indication: OSTEOPOROSIS
     Dosage: 35 MG, UNK
     Route: 048
     Dates: start: 20100311, end: 20100415
  4. LAMICTAL [Suspect]
     Indication: CONVULSION
     Dosage: 200 MG, UNK
     Route: 048
     Dates: start: 20100311, end: 20100412

REACTIONS (8)
  - ABSCESS [None]
  - FUNGAEMIA [None]
  - GRANULOCYTE COUNT DECREASED [None]
  - INTERSTITIAL LUNG DISEASE [None]
  - OXYGEN SATURATION DECREASED [None]
  - PNEUMOCYSTIS JIROVECI PNEUMONIA [None]
  - PYREXIA [None]
  - RESPIRATORY RATE DECREASED [None]
